FAERS Safety Report 8756676 (Version 1)
Quarter: 2012Q4

REPORT INFORMATION
  Report Type: 
  Country: BR (occurrence: BR)
  Receive Date: 20120828
  Receipt Date: 20120828
  Transmission Date: 20130627
  Serious: Yes (Life-Threatening, Other)
  Sender: FDA-Public Use
  Company Number: BR-JNJFOC-20120812117

PATIENT
  Age: 35 Year
  Sex: Female

DRUGS (3)
  1. PARACETAMOL [Suspect]
     Route: 065
  2. NOVALGINA [Suspect]
     Indication: PYREXIA
     Route: 065
     Dates: start: 2007
  3. NOVALGINA [Suspect]
     Indication: HEADACHE
     Route: 065
     Dates: start: 2007

REACTIONS (9)
  - Coma [Recovered/Resolved with Sequelae]
  - Infection [Unknown]
  - Thermal burn [Unknown]
  - Stevens-Johnson syndrome [Recovered/Resolved with Sequelae]
  - Renal failure [Unknown]
  - Corneal transplant [Unknown]
  - Vaginal disorder [Unknown]
  - Eye operation [Unknown]
  - Photophobia [Unknown]
